FAERS Safety Report 20580013 (Version 1)
Quarter: 2022Q1

REPORT INFORMATION
  Report Type: Other
  Country: CN (occurrence: None)
  Receive Date: 20220310
  Receipt Date: 20220310
  Transmission Date: 20220424
  Serious: Yes (Other)
  Sender: FDA-Public Use
  Company Number: CN-ROCHE-3048000

PATIENT

DRUGS (4)
  1. TRASTUZUMAB [Suspect]
     Active Substance: TRASTUZUMAB
     Indication: Gastric cancer
     Dosage: 14 DAYS AS 1 CYCLE, FOR 4 CYCLES
     Route: 042
  2. TRASTUZUMAB [Suspect]
     Active Substance: TRASTUZUMAB
     Dosage: ON DAY 1, 14 DAYS AS 1 CYCLE, FOR 4 CYCLES
     Route: 042
  3. CAPECITABINE [Suspect]
     Active Substance: CAPECITABINE
     Indication: Gastric cancer
     Dosage: DAY1-14, 14 DAYS AS 1 CYCLE, FOR 4 CYCLES
     Route: 048
  4. OXALIPLATIN [Suspect]
     Active Substance: OXALIPLATIN
     Indication: Gastric cancer
     Dosage: DAY1; 14 DAYS AS 1 CYCLE, FOR 4 CYCLES
     Route: 041

REACTIONS (1)
  - Myelosuppression [Unknown]
